FAERS Safety Report 8594563-2 (Version None)
Quarter: 2012Q3

REPORT INFORMATION
  Report Type: 
  Country: None (occurrence: None)
  Receive Date: 20120815
  Receipt Date: 20120806
  Transmission Date: 20120928
  Serious: Yes (Hospitalization)
  Sender: FDA-Public Use
  Company Number: US-ELI_LILLY_AND_COMPANY-US201203006414

PATIENT
  Sex: Female

DRUGS (4)
  1. LAMICTAL [Concomitant]
     Dosage: 100 MG, BID
     Route: 048
  2. ZYPREXA [Suspect]
     Dosage: 20 MG, QD
     Route: 048
     Dates: start: 20110601
  3. VENLAFAXINE HYDROCHOLRIDE [Concomitant]
     Dosage: 150 MG, QD
  4. ZYPREXA [Suspect]
     Dosage: 25 MG, QD
     Route: 048

REACTIONS (2)
  - OVERDOSE [None]
  - PSYCHOTIC DISORDER [None]
